FAERS Safety Report 9687034 (Version 1)
Quarter: 2013Q4

REPORT INFORMATION
  Report Type: Spontaneous
  Country: US (occurrence: US)
  Receive Date: 20131113
  Receipt Date: 20131113
  Transmission Date: 20140711
  Serious: Yes (Death, Other)
  Sender: FDA-Public Use
  Company Number: US-B.I. PHARMACEUTICALS,INC./RIDGEFIELD-2013-BI-37181BP

PATIENT
  Age: 62 Year
  Sex: Male

DRUGS (8)
  1. MIRAPEX [Suspect]
     Dosage: 0.125 MG
     Route: 048
     Dates: start: 201210
  2. AMITRIPTYLINE [Concomitant]
     Route: 048
  3. FUROSEMIDE [Concomitant]
     Route: 048
  4. HYDROXYZINE [Concomitant]
     Route: 048
  5. LACTULOSE [Concomitant]
     Dosage: FORMULATION: ORAL SUSPENSION
     Route: 048
  6. NEXIUM [Concomitant]
     Route: 048
  7. PROPANOLOL [Concomitant]
     Route: 048
  8. QUESTRAN [Concomitant]
     Route: 048

REACTIONS (3)
  - Death [Fatal]
  - Hepatic cirrhosis [Unknown]
  - Bone cancer [Unknown]
